FAERS Safety Report 8847319 (Version 2)
Quarter: 2012Q4

REPORT INFORMATION
  Report Type: 
  Country: US (occurrence: US)
  Receive Date: 20121018
  Receipt Date: 20121107
  Transmission Date: 20130627
  Serious: No
  Sender: FDA-Public Use
  Company Number: US-PFIZER INC-2012259191

PATIENT
  Age: 48 Year
  Sex: Male
  Weight: 70.3 kg

DRUGS (5)
  1. NEURONTIN [Suspect]
     Indication: NEUROPATHY PERIPHERAL
     Dosage: UNK
  2. NEURONTIN [Suspect]
     Indication: HERNIATED DISC
     Dosage: 600 mg, 2x/day
     Dates: start: 2012
  3. NEURONTIN [Suspect]
     Indication: INJURY
  4. NORCO [Concomitant]
     Indication: PAIN
     Dosage: 10/325 mg, 4x/day
  5. TEMAZEPAM [Concomitant]
     Indication: SLEEP PROBLEM
     Dosage: 30 mg, daily

REACTIONS (1)
  - Drug ineffective [Unknown]
